FAERS Safety Report 7042120-1 (Version None)
Quarter: 2010Q4

REPORT INFORMATION
  Report Type: 
  Country: None (occurrence: None)
  Receive Date: 20101013
  Receipt Date: 20100217
  Transmission Date: 20110411
  Serious: No
  Sender: FDA-Public Use
  Company Number: US-ASTRAZENECA-2010SE06977

PATIENT
  Age: 68 Year
  Sex: Female

DRUGS (6)
  1. SYMBICORT [Suspect]
     Indication: CHRONIC OBSTRUCTIVE PULMONARY DISEASE
     Dosage: 160/4.5 UG TWO TIMES A DAY
     Route: 055
  2. PROAIR HFA [Concomitant]
     Indication: CHRONIC OBSTRUCTIVE PULMONARY DISEASE
  3. FLUTICASONE PROPIONATE [Concomitant]
     Indication: MULTIPLE ALLERGIES
  4. BENZAPRIL [Concomitant]
     Indication: HYPERTENSION
  5. BISOPROLOL FUMARATE [Concomitant]
     Indication: HYPERTENSION
  6. LORAZEPAM [Concomitant]

REACTIONS (3)
  - HYPERTENSION [None]
  - STRESS [None]
  - TACHYCARDIA [None]
